FAERS Safety Report 4952297-7 (Version None)
Quarter: 2006Q1

REPORT INFORMATION
  Report Type: 
  Country: None (occurrence: None)
  Receive Date: 20060320
  Receipt Date: 20060309
  Transmission Date: 20060701
  Serious: Yes (Other)
  Sender: FDA-Public Use
  Company Number: 2006033380

PATIENT
  Age: 40 Year
  Sex: Male
  Weight: 77.1115 kg

DRUGS (1)
  1. NATURAL CITRUS LISTERINE (MENTHOL, METHYL SALICYLATE, EUCALYPTOL, THYM [Suspect]
     Indication: PROSTATE EXAMINATION
     Dosage: 2 OR 3 TIMES, RECTAL
     Route: 054
     Dates: start: 20060201, end: 20060201

REACTIONS (9)
  - ABDOMINAL PAIN UPPER [None]
  - BACTERIAL INFECTION [None]
  - COLITIS [None]
  - DEPRESSION [None]
  - DYSGEUSIA [None]
  - FEELING ABNORMAL [None]
  - GASTROINTESTINAL PAIN [None]
  - MALAISE [None]
  - PAROSMIA [None]
